FAERS Safety Report 5604510-0 (Version None)
Quarter: 2008Q1

REPORT INFORMATION
  Report Type: 
  Country: None (occurrence: None)
  Receive Date: 20080123
  Receipt Date: 20080123
  Transmission Date: 20080703
  Serious: Yes (Other)
  Sender: FDA-Public Use
  Company Number: None

PATIENT
  Age: 71 Year
  Sex: Male
  Weight: 106.5953 kg

DRUGS (1)
  1. ERBITUX [Suspect]
     Indication: COLON CANCER
     Dosage: 250 MG/M2 -585 MG- QWEEK IV DRIP
     Route: 041
     Dates: start: 20051205, end: 20071214

REACTIONS (1)
  - OCULAR TOXICITY [None]
